FAERS Safety Report 9166409 (Version 2)
Quarter: 2013Q1

REPORT INFORMATION
  Report Type: Spontaneous
  Country: IN (occurrence: IN)
  Receive Date: 20130315
  Receipt Date: 20130325
  Transmission Date: 20140127
  Serious: Yes (Other)
  Sender: FDA-Public Use
  Company Number: IN-JNJFOC-20130112060

PATIENT
  Sex: 0

DRUGS (2)
  1. RISPERIDONE [Suspect]
     Indication: SCHIZOPHRENIA
     Dosage: 2-6 MG PER DAY FOR 8 WEEKS
     Route: 048
  2. HALOPERIDOL [Suspect]
     Indication: SCHIZOPHRENIA
     Dosage: 2-6 MG PER DAY
     Route: 065

REACTIONS (12)
  - Extrapyramidal disorder [Unknown]
  - Glucose tolerance impaired [Unknown]
  - Orthostatic hypotension [Unknown]
  - Tardive dyskinesia [Unknown]
  - Blood prolactin increased [Unknown]
  - Hyperprolactinaemia [Unknown]
  - Weight increased [Unknown]
  - Increased appetite [Unknown]
  - Dysarthria [Unknown]
  - Dizziness [Unknown]
  - Alanine aminotransferase increased [Unknown]
  - Aspartate aminotransferase increased [Unknown]
